FAERS Safety Report 11251425 (Version 1)
Quarter: 2015Q3

REPORT INFORMATION
  Report Type: Spontaneous
  Country: US (occurrence: US)
  Receive Date: 20150708
  Receipt Date: 20150708
  Transmission Date: 20151125
  Serious: Yes (Other)
  Sender: FDA-Public Use
  Company Number: US-ELI_LILLY_AND_COMPANY-US201202003071

PATIENT
  Sex: Female
  Weight: 45.8 kg

DRUGS (3)
  1. DEXAMETHASONE. [Concomitant]
     Active Substance: DEXAMETHASONE
  2. PROCHLORPERAZINE. [Concomitant]
     Active Substance: PROCHLORPERAZINE
  3. GEMZAR [Suspect]
     Active Substance: GEMCITABINE HYDROCHLORIDE
     Indication: RECTAL CANCER
     Dosage: 1400 MG, ON DAYS 1 + 8 Q21 DAYS
     Route: 042
     Dates: start: 201102, end: 20110301

REACTIONS (1)
  - Neoplasm progression [Unknown]
